FAERS Safety Report 20898117 (Version 1)
Quarter: 2022Q2

REPORT INFORMATION
  Report Type: Spontaneous
  Country: DE (occurrence: DE)
  Receive Date: 20220531
  Receipt Date: 20220531
  Transmission Date: 20220720
  Serious: Yes (Other)
  Sender: FDA-Public Use
  Company Number: DE-EMBRYOTOX-202112099

PATIENT

DRUGS (1)
  1. DESMOPRESSIN [Suspect]
     Active Substance: DESMOPRESSIN
     Indication: Diabetes insipidus
     Dosage: 1 MG (1MG/D)
     Route: 064
     Dates: start: 20201018, end: 20210728

REACTIONS (3)
  - Oliguria [Recovered/Resolved]
  - Foetal exposure during pregnancy [Recovered/Resolved]
  - Incorrect dose administered [Unknown]
